FAERS Safety Report 7420192-X (Version None)
Quarter: 2011Q2

REPORT INFORMATION
  Report Type: 
  Country: None (occurrence: None)
  Receive Date: 20110418
  Receipt Date: 20110408
  Transmission Date: 20111010
  Serious: Yes (Hospitalization)
  Sender: FDA-Public Use
  Company Number: IE-B.I. PHARMACEUTICALS,INC./RIDGEFIELD-2011-UK-00390UK

PATIENT
  Age: 53 Year
  Sex: Male

DRUGS (8)
  1. RAMIPRIL [Concomitant]
     Dosage: 10 MG
  2. EPLENERONE [Concomitant]
     Dosage: 25 MG
  3. ATORVASTATIN CALCIUM [Concomitant]
     Dosage: 40 MG
  4. PRADAXA [Suspect]
     Indication: CEREBROVASCULAR ACCIDENT PROPHYLAXIS
     Dosage: 220 MG
     Route: 048
  5. LANSOPRAZOLE [Concomitant]
     Dosage: 30 MG
  6. THIAMINE [Concomitant]
     Dosage: 300 MG
  7. BISOPROLOL [Concomitant]
     Dosage: 10 MG
  8. PRADAXA [Suspect]
     Dosage: 300 MG
     Route: 048
     Dates: start: 20110324

REACTIONS (5)
  - HYPOAESTHESIA [None]
  - HEMIPARESIS [None]
  - ISCHAEMIC STROKE [None]
  - APHASIA [None]
  - VIITH NERVE PARALYSIS [None]
